FAERS Safety Report 4540456-7 (Version None)
Quarter: 2004Q4

REPORT INFORMATION
  Report Type: 
  Country: None (occurrence: None)
  Receive Date: 20041229
  Receipt Date: 20041217
  Transmission Date: 20050328
  Serious: Yes (Hospitalization)
  Sender: FDA-Public Use
  Company Number: JP-JNJFOC-20040806917

PATIENT
  Sex: Female
  Weight: 45 kg

DRUGS (21)
  1. REMICADE [Suspect]
     Route: 042
  2. REMICADE [Suspect]
     Route: 042
  3. REMICADE [Suspect]
     Indication: RHEUMATOID ARTHRITIS
     Route: 042
  4. METHOTREXATE [Concomitant]
  5. METHOTREXATE [Concomitant]
  6. METHOTREXATE [Concomitant]
  7. METHOTREXATE [Concomitant]
  8. METHOTREXATE [Concomitant]
  9. METHOTREXATE [Concomitant]
  10. PREDONINE [Concomitant]
     Dosage: SINCE BEFORE NOV-2000
     Route: 049
  11. LOXONINE [Concomitant]
     Route: 049
  12. RENIVACE [Concomitant]
     Indication: HYPERTENSION
     Dosage: SINCE BEFORE NOV-2000
     Route: 049
  13. PERDIPINE-LA [Concomitant]
     Indication: HYPERTENSION
     Route: 049
  14. MUCOSTA [Concomitant]
     Indication: GASTRITIS
     Route: 049
  15. ULGUT [Concomitant]
     Indication: GASTRITIS
     Route: 049
  16. FOLIAMIN [Concomitant]
     Dosage: DOSE ALSO REPORTED AS (5) 3T/W
     Route: 049
  17. LENDORMIN [Concomitant]
     Dosage: DOSE NOTED AS (0.25) 1T
     Route: 049
  18. BONALON [Concomitant]
     Dosage: DOSE= (5) 1T
     Route: 049
  19. INH [Concomitant]
     Route: 049
  20. INH [Concomitant]
     Route: 049
  21. INH [Concomitant]
     Indication: TUBERCULOSIS PROPHYLAXIS
     Route: 049

REACTIONS (7)
  - CONFUSIONAL STATE [None]
  - DEEP VEIN THROMBOSIS [None]
  - DEPRESSED LEVEL OF CONSCIOUSNESS [None]
  - HYPOGLYCAEMIA [None]
  - HYPONATRAEMIA [None]
  - PALPITATIONS [None]
  - PNEUMOCYSTIS CARINII PNEUMONIA [None]
